FAERS Safety Report 7509212-1 (Version None)
Quarter: 2011Q2

REPORT INFORMATION
  Report Type: 
  Country: None (occurrence: None)
  Receive Date: 20110527
  Receipt Date: 20110520
  Transmission Date: 20111010
  Serious: Yes (Hospitalization, Other)
  Sender: FDA-Public Use
  Company Number: US-AMGEN-USASP2011026459

PATIENT
  Age: 63 Year
  Sex: Female

DRUGS (1)
  1. ENBREL [Suspect]
     Indication: RHEUMATOID ARTHRITIS
     Dosage: 50 MG, QWK
     Dates: start: 20060101

REACTIONS (7)
  - KNEE DEFORMITY [None]
  - INFLUENZA [None]
  - VITAMIN B12 DEFICIENCY [None]
  - NASOPHARYNGITIS [None]
  - PERNICIOUS ANAEMIA [None]
  - ARTHRALGIA [None]
  - JOINT DESTRUCTION [None]
